FAERS Safety Report 22228853 (Version 1)
Quarter: 2023Q2

REPORT INFORMATION
  Report Type: Spontaneous
  Country: US (occurrence: None)
  Receive Date: 20230417
  Receipt Date: 20230417
  Transmission Date: 20230721
  Serious: Yes (Other)
  Sender: FDA-Public Use
  Company Number: None

PATIENT
  Age: 84 Year
  Sex: Male
  Weight: 80.29 kg

DRUGS (5)
  1. CEPHALEXIN [Suspect]
     Active Substance: CEPHALEXIN
     Indication: Skin neoplasm excision
     Route: 048
     Dates: start: 20230315, end: 20230318
  2. ELIQUIS [Concomitant]
     Active Substance: APIXABAN
  3. DIGOXIN [Concomitant]
     Active Substance: DIGOXIN
  4. DIAZEPAM [Concomitant]
     Active Substance: DIAZEPAM
  5. BUSPIRONE [Concomitant]
     Active Substance: BUSPIRONE HYDROCHLORIDE

REACTIONS (3)
  - Diarrhoea [None]
  - Defaecation urgency [None]
  - Therapy cessation [None]

NARRATIVE: CASE EVENT DATE: 20230316
